FAERS Safety Report 5841432-4 (Version None)
Quarter: 2008Q3

REPORT INFORMATION
  Report Type: 
  Country: None (occurrence: None)
  Receive Date: 20080812
  Receipt Date: 20080520
  Transmission Date: 20090109
  Serious: No
  Sender: FDA-Public Use
  Company Number: US-BAYER-200823701NA

PATIENT
  Age: 35 Year
  Sex: Female
  Weight: 84 kg

DRUGS (1)
  1. MIRENA [Suspect]
     Indication: CONTRACEPTION
     Route: 015

REACTIONS (14)
  - ARTHRALGIA [None]
  - BACK PAIN [None]
  - CRYING [None]
  - DEPRESSION [None]
  - HYPOAESTHESIA [None]
  - MALAISE [None]
  - MOOD SWINGS [None]
  - OROPHARYNGEAL DISCOMFORT [None]
  - PARAESTHESIA [None]
  - PRURITUS GENITAL [None]
  - SWELLING [None]
  - URTICARIA [None]
  - VULVOVAGINAL BURNING SENSATION [None]
  - VULVOVAGINAL DISCOMFORT [None]
